FAERS Safety Report 14521957 (Version 3)
Quarter: 2018Q2

REPORT INFORMATION
  Report Type: Spontaneous
  Country: US (occurrence: US)
  Receive Date: 20180212
  Receipt Date: 20180622
  Transmission Date: 20180711
  Serious: Yes (Other)
  Sender: FDA-Public Use
  Company Number: US-009507513-1802USA004515

PATIENT
  Age: 71 Year
  Sex: Male

DRUGS (6)
  1. INTEGRILIN [Suspect]
     Active Substance: EPTIFIBATIDE
     Indication: VENTRICULAR FIBRILLATION
  2. INTEGRILIN [Suspect]
     Active Substance: EPTIFIBATIDE
     Indication: CARDIAC ARREST
     Dosage: UNK
     Route: 040
  3. NITROGLYCERIN. [Suspect]
     Active Substance: NITROGLYCERIN
     Indication: CARDIAC ARREST
     Dosage: UNK
     Route: 042
  4. HEPARIN [Suspect]
     Active Substance: HEPARIN SODIUM
     Indication: VENTRICULAR FIBRILLATION
  5. NITROGLYCERIN. [Suspect]
     Active Substance: NITROGLYCERIN
     Indication: VENTRICULAR FIBRILLATION
  6. HEPARIN [Suspect]
     Active Substance: HEPARIN SODIUM
     Indication: CARDIAC ARREST
     Dosage: UNK
     Route: 042

REACTIONS (1)
  - Drug ineffective [Unknown]
